FAERS Safety Report 14303987 (Version 1)
Quarter: 2017Q4

REPORT INFORMATION
  Report Type: Spontaneous
  Country: US (occurrence: US)
  Receive Date: 20171219
  Receipt Date: 20171219
  Transmission Date: 20180321
  Serious: Yes (Life-Threatening, Hospitalization, Other)
  Sender: FDA-Public Use
  Company Number: US-OTSUKA-KJ20120442

PATIENT

DRUGS (28)
  1. PROZAC [Suspect]
     Active Substance: FLUOXETINE HYDROCHLORIDE
     Indication: MAJOR DEPRESSION
     Route: 065
     Dates: start: 201106
  2. ACTOS [Concomitant]
     Active Substance: PIOGLITAZONE HYDROCHLORIDE
     Route: 065
  3. WELCHOL [Concomitant]
     Active Substance: COLESEVELAM HYDROCHLORIDE
     Route: 065
  4. GABAPENTIN. [Concomitant]
     Active Substance: GABAPENTIN
     Dosage: 800 MG, UNK
  5. LEXAPRO [Suspect]
     Active Substance: ESCITALOPRAM OXALATE
     Indication: BIPOLAR I DISORDER
     Dosage: UNK
     Dates: start: 201106
  6. MISOPROSTOL. [Concomitant]
     Active Substance: MISOPROSTOL
     Route: 065
  7. SINGULAIR [Concomitant]
     Active Substance: MONTELUKAST SODIUM
     Route: 065
  8. VALSARTAN. [Concomitant]
     Active Substance: VALSARTAN
  9. FLUOXETINE HYDROCHLORIDE. [Suspect]
     Active Substance: FLUOXETINE HYDROCHLORIDE
     Indication: MAJOR DEPRESSION
     Dosage: UNK
     Dates: start: 201106
  10. FLUOXETINE HYDROCHLORIDE. [Suspect]
     Active Substance: FLUOXETINE HYDROCHLORIDE
     Indication: SCHIZOPHRENIA
  11. DIOVAN [Concomitant]
     Active Substance: VALSARTAN
     Route: 065
  12. GLIMEPIRIDE. [Concomitant]
     Active Substance: GLIMEPIRIDE
  13. OMEPRAZOLE. [Concomitant]
     Active Substance: OMEPRAZOLE
  14. ARIPIPRAZOLE. [Suspect]
     Active Substance: ARIPIPRAZOLE
     Indication: SCHIZOPHRENIA
  15. TOPAMAX [Concomitant]
     Active Substance: TOPIRAMATE
     Route: 065
  16. PRILOSEC [Concomitant]
     Active Substance: OMEPRAZOLE MAGNESIUM
     Route: 065
  17. GLIMEPIRIDE. [Concomitant]
     Active Substance: GLIMEPIRIDE
     Route: 065
  18. MISOPROSTOL. [Concomitant]
     Active Substance: MISOPROSTOL
  19. ARIPIPRAZOLE. [Suspect]
     Active Substance: ARIPIPRAZOLE
     Indication: BIPOLAR I DISORDER
     Route: 048
     Dates: start: 201106
  20. CELEBREX [Concomitant]
     Active Substance: CELECOXIB
     Route: 065
  21. LEXAPRO [Suspect]
     Active Substance: ESCITALOPRAM OXALATE
     Indication: BIPOLAR I DISORDER
     Route: 065
     Dates: start: 201106
  22. WELLBUTRIN [Suspect]
     Active Substance: BUPROPION HYDROCHLORIDE
     Indication: BIPOLAR I DISORDER
     Route: 065
     Dates: start: 201106
  23. WELLBUTRIN [Suspect]
     Active Substance: BUPROPION HYDROCHLORIDE
     Indication: SCHIZOPHRENIA
  24. VESICARE [Concomitant]
     Active Substance: SOLIFENACIN SUCCINATE
     Route: 065
  25. QUETIAPINE. [Concomitant]
     Active Substance: QUETIAPINE
  26. LEXAPRO [Suspect]
     Active Substance: ESCITALOPRAM OXALATE
     Indication: SCHIZOPHRENIA
  27. SEROQUEL [Concomitant]
     Active Substance: QUETIAPINE FUMARATE
     Route: 065
  28. NEURONTIN [Concomitant]
     Active Substance: GABAPENTIN
     Route: 065

REACTIONS (10)
  - Major depression [Unknown]
  - Blood glucose increased [Recovering/Resolving]
  - Dry mouth [Unknown]
  - Paranoia [Not Recovered/Not Resolved]
  - Suicidal ideation [Unknown]
  - Drug ineffective [Unknown]
  - Medication error [Unknown]
  - Overdose [Unknown]
  - Dizziness [Unknown]
  - Headache [Unknown]
